FAERS Safety Report 12039391 (Version 5)
Quarter: 2016Q2

REPORT INFORMATION
  Report Type: Report from Study
  Country: GB (occurrence: GB)
  Receive Date: 20160208
  Receipt Date: 20160608
  Transmission Date: 20160815
  Serious: Yes (Hospitalization)
  Sender: FDA-Public Use
  Company Number: GB-ROCHE-1688834

PATIENT
  Sex: Male

DRUGS (2)
  1. ESBRIET [Suspect]
     Active Substance: PIRFENIDONE
     Indication: IDIOPATHIC PULMONARY FIBROSIS
     Route: 048
     Dates: start: 20151222
  2. ESBRIET [Suspect]
     Active Substance: PIRFENIDONE
     Dosage: 7 CAPSULES DAILY
     Route: 048

REACTIONS (20)
  - Decreased appetite [Unknown]
  - Cough [Not Recovered/Not Resolved]
  - Weight decreased [Unknown]
  - Urinary retention [Unknown]
  - Depression [Unknown]
  - Muscular weakness [Not Recovered/Not Resolved]
  - Dysstasia [Unknown]
  - Fatigue [Recovered/Resolved]
  - Asthenia [Unknown]
  - Sleep disorder [Unknown]
  - Sputum discoloured [Unknown]
  - Peripheral swelling [Unknown]
  - Sensory disturbance [Unknown]
  - Decubitus ulcer [Unknown]
  - Gait disturbance [Unknown]
  - Panic attack [Unknown]
  - General physical health deterioration [Not Recovered/Not Resolved]
  - Dyspnoea [Recovered/Resolved]
  - Gastrooesophageal reflux disease [Unknown]
  - Anxiety [Unknown]
